FAERS Safety Report 4513187-7 (Version None)
Quarter: 2004Q4

REPORT INFORMATION
  Report Type: 
  Country: None (occurrence: None)
  Receive Date: 20041124
  Receipt Date: 20041105
  Transmission Date: 20050328
  Serious: Yes (Other)
  Sender: FDA-Public Use
  Company Number: USA030331701

PATIENT
  Age: 67 Year
  Sex: Female
  Weight: 72 kg

DRUGS (20)
  1. FORTEO [Suspect]
     Indication: OSTEOPOROSIS
     Dosage: 20 UG/1 DAY
     Dates: start: 20030101
  2. ACTONEL [Concomitant]
  3. ANTIHYPERTENSIVE [Concomitant]
  4. BENICAR (BENICAR) [Concomitant]
  5. OXYCONTIN [Concomitant]
  6. PERCOCET [Concomitant]
  7. PREDNISONE [Concomitant]
  8. VITAMIN D [Concomitant]
  9. BEXTRA [Concomitant]
  10. METHOTREXATE [Concomitant]
  11. ZOLOFT [Concomitant]
  12. BACLOFEN [Concomitant]
  13. CARDIZEM [Concomitant]
  14. FOLIC ACID [Concomitant]
  15. KCL (POTASSIUM CHLORIDE) [Concomitant]
  16. NEURONTIN (GABAPENTIN PFIZER) [Concomitant]
  17. CALCIUM AND VITAMIN D [Concomitant]
  18. ZANTAC [Concomitant]
  19. FENTANYL [Concomitant]
  20. HYDROCODONE [Concomitant]

REACTIONS (8)
  - ARTHRALGIA [None]
  - BACK PAIN [None]
  - FALL [None]
  - HIP FRACTURE [None]
  - IMPAIRED HEALING [None]
  - PHARMACEUTICAL PRODUCT COMPLAINT [None]
  - SPINAL FRACTURE [None]
  - TREATMENT NONCOMPLIANCE [None]
